FAERS Safety Report 9870971 (Version 1)
Quarter: 2014Q1

REPORT INFORMATION
  Report Type: Spontaneous
  Country: GB (occurrence: None)
  Receive Date: 20140203
  Receipt Date: 20140203
  Transmission Date: 20141002
  Serious: No
  Sender: FDA-Public Use
  Company Number: GB2014K0183SPO

PATIENT
  Age: 38 Year
  Sex: Male
  Weight: 71 kg

DRUGS (4)
  1. LANSOPRAZOLE GENERIC (LANSOPRAZOLE) UNKNOWN [Suspect]
     Indication: DYSPEPSIA
     Route: 048
     Dates: start: 20131111, end: 20131212
  2. MIRTAZAPINE [Suspect]
     Indication: DEPRESSED MOOD
     Route: 048
     Dates: start: 20131111, end: 20131212
  3. CITALOPRAM [Concomitant]
  4. PREGABALIN [Concomitant]

REACTIONS (1)
  - Hepatitis acute [None]
